FAERS Safety Report 9391167 (Version 3)
Quarter: 2013Q3

REPORT INFORMATION
  Report Type: Spontaneous
  Country: BE (occurrence: BE)
  Receive Date: 20130709
  Receipt Date: 20130716
  Transmission Date: 20140515
  Serious: No
  Sender: FDA-Public Use
  Company Number: BE-US-EMD SERONO, INC.-7221979

PATIENT
  Sex: Female

DRUGS (5)
  1. REBIF [Suspect]
     Indication: MULTIPLE SCLEROSIS
     Dates: start: 201305
  2. REBIF [Suspect]
  3. REBIF [Suspect]
  4. REBIF [Suspect]
  5. SIPRALEXA                          /01588501/ [Concomitant]
     Indication: DEPRESSION

REACTIONS (2)
  - Alopecia [Not Recovered/Not Resolved]
  - Anxiety [Not Recovered/Not Resolved]
